FAERS Safety Report 6029094-7 (Version None)
Quarter: 2008Q4

REPORT INFORMATION
  Report Type: 
  Country: None (occurrence: None)
  Receive Date: 20081231
  Receipt Date: 20081216
  Transmission Date: 20090506
  Serious: Yes (Hospitalization)
  Sender: FDA-Public Use
  Company Number: 2008S1022500

PATIENT
  Sex: Female

DRUGS (7)
  1. METOPROLOL TARTRATE [Suspect]
     Indication: DRUG USE FOR UNKNOWN INDICATION
     Dosage: 100 MG;DAILY;ORAL
     Route: 048
     Dates: start: 20070101, end: 20080627
  2. MELNEURIN (MELPERONE HYDROCHLORIDE) [Suspect]
     Indication: DRUG USE FOR UNKNOWN INDICATION
     Dosage: 25 MG;DAILY;ORAL
     Route: 048
     Dates: start: 20080606, end: 20080707
  3. METOPROLOL TARTRATE [Suspect]
     Indication: DRUG USE FOR UNKNOWN INDICATION
     Dosage: 47.5 MG; ORAL
     Route: 048
     Dates: start: 20080628
  4. VIREAD [Suspect]
     Indication: DRUG USE FOR UNKNOWN INDICATION
     Dosage: 245 MG; ORAL
     Route: 048
     Dates: start: 20080501
  5. ATACAND [Concomitant]
  6. INSULIN [Concomitant]
  7. LANTUS [Concomitant]

REACTIONS (1)
  - ACCOMMODATION DISORDER [None]
